FAERS Safety Report 21194411 (Version 1)
Quarter: 2022Q3

REPORT INFORMATION
  Report Type: Spontaneous
  Country: US (occurrence: US)
  Receive Date: 20220810
  Receipt Date: 20220810
  Transmission Date: 20221027
  Serious: Yes (Other)
  Sender: FDA-Public Use
  Company Number: US-STRIDES ARCOLAB LIMITED-2022SP008157

PATIENT
  Age: 46 Year
  Sex: Female

DRUGS (9)
  1. URSODIOL [Suspect]
     Active Substance: URSODIOL
     Indication: Diabetic hepatopathy
     Dosage: UNK
     Route: 065
  2. INSULIN NOS [Suspect]
     Active Substance: INSULIN NOS
     Indication: Diabetic ketoacidosis
     Dosage: UNK
     Route: 065
  3. INSULIN NOS [Suspect]
     Active Substance: INSULIN NOS
     Indication: Diabetes mellitus inadequate control
     Dosage: 5 UNITS BEFORE MEALS (INSULIN-LISPRO)
     Route: 065
  4. INSULIN NOS [Suspect]
     Active Substance: INSULIN NOS
     Dosage: 50 UNITS QHS (INSULIN-GLARGINE)
     Route: 065
  5. INSULIN NOS [Suspect]
     Active Substance: INSULIN NOS
     Dosage: INSULIN-SUSPENSION-ISOPHANE
     Route: 065
  6. BETAMETHASONE [Suspect]
     Active Substance: BETAMETHASONE
     Indication: Postponement of preterm delivery
     Dosage: 12 MILLIGRAM
     Route: 030
  7. HYDRALAZINE [Suspect]
     Active Substance: HYDRALAZINE HYDROCHLORIDE
     Indication: Pre-eclampsia
     Dosage: 5 MILLIGRAM
     Route: 042
  8. LABETALOL [Suspect]
     Active Substance: LABETALOL\LABETALOL HYDROCHLORIDE
     Indication: Pre-eclampsia
     Dosage: 300 MILLIGRAM
     Route: 048
  9. MAGNESIUM SULFATE [Suspect]
     Active Substance: MAGNESIUM SULFATE
     Indication: Pre-eclampsia
     Dosage: UNK
     Route: 042

REACTIONS (2)
  - Drug ineffective [Unknown]
  - Maternal exposure during pregnancy [Unknown]
